FAERS Safety Report 9506667 (Version 1)
Quarter: 2013Q1

REPORT INFORMATION
  Report Type: Spontaneous
  Country: US (occurrence: None)
  Receive Date: 20130305
  Receipt Date: 20130305
  Transmission Date: 20140127
  Serious: Yes (Hospitalization)
  Sender: FDA-Public Use
  Company Number: 163-21880-12030251

PATIENT
  Age: 87 Year
  Sex: Female
  Weight: 73.03 kg

DRUGS (8)
  1. REVLIMID [Suspect]
     Indication: PLASMA CELL MYELOMA
     Dosage: 25 MG, 21/7, PO?
     Route: 048
     Dates: start: 20120202
  2. LATANOPROST (LATANOPROST) (DROPS) [Concomitant]
  3. BETAXOLOL (BETAXOLOL) (UNKNOWN) [Concomitant]
  4. LEVOTHYROXINE (LEVOTHYROXINE) (UNKNOWN) [Concomitant]
  5. TRICOR (FENOFIBRATE) (UNKNOWN) [Concomitant]
  6. DEXAMETHASONE (DEXAMETHASONE) (UNKNOWN) [Concomitant]
  7. AMLODIPINE (AMLODIPINE) (UNKNOWN) [Concomitant]
  8. MEGESTROL (MEGESTROL) (UNKNOWN) [Concomitant]

REACTIONS (3)
  - Transaminases increased [None]
  - Rash [None]
  - Eosinophilia [None]
